FAERS Safety Report 25115851 (Version 3)
Quarter: 2025Q3

REPORT INFORMATION
  Report Type: Report from Study
  Country: GB (occurrence: GB)
  Receive Date: 20250325
  Receipt Date: 20250902
  Transmission Date: 20251021
  Serious: Yes (Other)
  Sender: SANDOZ
  Company Number: GB-SANDOZ-SDZ2024GB096025

PATIENT
  Sex: Male

DRUGS (1)
  1. ERELZI [Suspect]
     Active Substance: ETANERCEPT-SZZS
     Indication: Psoriatic arthropathy
     Dosage: 50.000MG, Q2W (ERELZI 50MG/1ML SOLUTION FOR INJECTION PRE-FILLED PENS (SANDOZ LTD) 4 PRE-FILLED DISP
     Route: 058

REACTIONS (5)
  - Surgery [Unknown]
  - Psoriatic arthropathy [Unknown]
  - Adverse event [Unknown]
  - Inappropriate schedule of product administration [Unknown]
  - Product dose omission issue [Unknown]
